FAERS Safety Report 9187031 (Version 2)
Quarter: 2013Q3

REPORT INFORMATION
  Report Type: Spontaneous
  Country: US (occurrence: US)
  Receive Date: 20121031
  Receipt Date: 20130712
  Transmission Date: 20140515
  Serious: No
  Sender: FDA-Public Use
  Company Number: US-009507513-1210USA013809

PATIENT
  Sex: Male

DRUGS (4)
  1. VICTRELIS [Suspect]
     Indication: HEPATITIS C
     Dosage: UNK
     Route: 048
     Dates: start: 20120913, end: 20121101
  2. REBETOL [Suspect]
     Indication: HEPATITIS C
     Dosage: UNK
     Route: 048
     Dates: start: 20120801
  3. REBETOL [Suspect]
     Dosage: UNK, BID, DECREASED WHITE PILLS TO 2 AM AND 1 PM
     Route: 048
     Dates: start: 2012, end: 20121101
  4. PEGASYS [Suspect]
     Indication: HEPATITIS C
     Dosage: UNK
     Dates: start: 20120801, end: 20121101

REACTIONS (2)
  - Haemoglobin decreased [Unknown]
  - No therapeutic response [Unknown]
